FAERS Safety Report 9842754 (Version 2)
Quarter: 2014Q1

REPORT INFORMATION
  Report Type: Report from Study
  Country: IT (occurrence: IT)
  Receive Date: 20140124
  Receipt Date: 20140212
  Transmission Date: 20141002
  Serious: Yes (Death)
  Sender: FDA-Public Use
  Company Number: IT-BAYER-2014-012808

PATIENT
  Sex: Male
  Weight: 89 kg

DRUGS (5)
  1. ALPHARADIN [Suspect]
     Indication: PROSTATE CANCER STAGE IV
     Dosage: 50 KBQ/KG ONCE MONTH
     Route: 042
     Dates: start: 20130924, end: 20140107
  2. ALPHARADIN [Suspect]
     Indication: METASTASES TO BONE
  3. OXYCONTIN [Concomitant]
     Indication: PAIN
     Dosage: TOTAL DAILY DOSE 20 MG
     Route: 048
     Dates: end: 20140117
  4. LYRICA [Concomitant]
     Indication: PAIN
     Dosage: TOTAL DAILY DOSE: 150 MG
     Route: 048
     Dates: end: 20140117
  5. DELTACORTENE [Concomitant]
     Indication: PAIN
     Dosage: TOTAL DAILY DOSE: 25 MG
     Route: 048
     Dates: end: 20140117

REACTIONS (1)
  - General physical health deterioration [Fatal]
